FAERS Safety Report 7786705-3 (Version None)
Quarter: 2011Q3

REPORT INFORMATION
  Report Type: 
  Country: None (occurrence: None)
  Receive Date: 20110929
  Receipt Date: 20110922
  Transmission Date: 20111222
  Serious: No
  Sender: FDA-Public Use
  Company Number: US-PFIZER INC-2011226950

PATIENT
  Sex: Male

DRUGS (1)
  1. BENZYLPENICILLOYL-POLYLYSINE [Suspect]
     Dosage: UNK

REACTIONS (2)
  - SWELLING [None]
  - DYSPNOEA [None]
